FAERS Safety Report 10026766 (Version 1)
Quarter: 2014Q1

REPORT INFORMATION
  Report Type: Spontaneous
  Country: GB (occurrence: None)
  Receive Date: 20140318
  Receipt Date: 20140318
  Transmission Date: 20141002
  Serious: Yes (Other)
  Sender: FDA-Public Use
  Company Number: 2014P1002158

PATIENT
  Age: 15 Year
  Sex: Female

DRUGS (4)
  1. PYRIMETHAMINE [Suspect]
     Indication: CHOROIDITIS
  2. SULFADIAZINE [Suspect]
     Indication: CHOROIDITIS
  3. FOLIC ACID [Suspect]
     Indication: CHOROIDITIS
  4. PREDNISONE [Suspect]
     Indication: CHOROIDITIS

REACTIONS (9)
  - Viral infection [None]
  - Rash papular [None]
  - Pruritus [None]
  - Petechiae [None]
  - Hepatomegaly [None]
  - Eosinophilia [None]
  - Monocytosis [None]
  - Drug reaction with eosinophilia and systemic symptoms [None]
  - Hepatic necrosis [None]
